FAERS Safety Report 5045093-6 (Version None)
Quarter: 2006Q3

REPORT INFORMATION
  Report Type: 
  Country: None (occurrence: None)
  Receive Date: 20060707
  Receipt Date: 20060628
  Transmission Date: 20061208
  Serious: Yes (Congenital Anomaly)
  Sender: FDA-Public Use
  Company Number: US-JNJFOC-20060606400

PATIENT
  Sex: Female
  Weight: 2.33 kg

DRUGS (2)
  1. TOPAMAX [Suspect]
     Indication: DRUG EXPOSURE DURING PREGNANCY
     Dosage: THROUGHOUT PREGNANCY
  2. COPAXONE [Concomitant]
     Indication: DRUG EXPOSURE DURING PREGNANCY
     Dosage: THROUGHOUT PREGNANCY
     Route: 015

REACTIONS (1)
  - PATENT DUCTUS ARTERIOSUS [None]
